FAERS Safety Report 11762616 (Version 1)
Quarter: 2015Q4

REPORT INFORMATION
  Report Type: Spontaneous
  Country: US (occurrence: US)
  Receive Date: 20151120
  Receipt Date: 20151120
  Transmission Date: 20160304
  Serious: No
  Sender: FDA-Public Use
  Company Number: US-ELI_LILLY_AND_COMPANY-US201302000537

PATIENT
  Age: 91 Year
  Sex: Female

DRUGS (2)
  1. FORTEO [Suspect]
     Active Substance: TERIPARATIDE
     Dosage: UNK
     Dates: start: 200512
  2. FORTEO [Suspect]
     Active Substance: TERIPARATIDE
     Dosage: UNK
     Dates: start: 201301

REACTIONS (2)
  - Bone density decreased [Unknown]
  - Dizziness [Unknown]

NARRATIVE: CASE EVENT DATE: 200702
